FAERS Safety Report 24628883 (Version 1)
Quarter: 2024Q4

REPORT INFORMATION
  Report Type: Spontaneous
  Country: US (occurrence: US)
  Receive Date: 20241118
  Receipt Date: 20241118
  Transmission Date: 20250115
  Serious: Yes (Hospitalization)
  Sender: AUROBINDO
  Company Number: US-AUROBINDO-AUR-APL-2024-055424

PATIENT
  Age: 53 Year
  Sex: Female

DRUGS (4)
  1. ACYCLOVIR [Suspect]
     Active Substance: ACYCLOVIR
     Indication: Epstein-Barr virus infection
     Dosage: UNK
     Route: 042
  2. ACYCLOVIR [Suspect]
     Active Substance: ACYCLOVIR
     Dosage: 800 MILLIGRAM 5 TIMES DAILY
     Route: 048
  3. ACYCLOVIR [Suspect]
     Active Substance: ACYCLOVIR
     Indication: Epstein-Barr virus infection
     Dosage: 800 MILLIGRAM, 5 TIMES A DAY
     Route: 048
  4. AMPICILLIN [Concomitant]
     Active Substance: AMPICILLIN
     Indication: Product used for unknown indication
     Dosage: UNK
     Route: 065

REACTIONS (1)
  - Drug ineffective [Unknown]
